FAERS Safety Report 4685377-4 (Version None)
Quarter: 2005Q2

REPORT INFORMATION
  Report Type: 
  Country: None (occurrence: None)
  Receive Date: 20050608
  Receipt Date: 20030729
  Transmission Date: 20051028
  Serious: Yes (Other)
  Sender: FDA-Public Use
  Company Number: GB-GLAXOSMITHKLINE-B0305540A

PATIENT
  Age: 64 Year
  Sex: Male

DRUGS (8)
  1. ROSIGLITAZONE MALEATE [Suspect]
     Dosage: 4MG PER DAY
     Route: 048
     Dates: start: 20011201, end: 20021201
  2. METFORMIN [Concomitant]
     Dosage: 500MG THREE TIMES PER DAY
     Route: 065
     Dates: start: 20010101
  3. SULPHONYLUREA [Concomitant]
     Route: 065
  4. STATINS [Concomitant]
     Route: 065
  5. BEZAFIBRATE [Concomitant]
     Dosage: 200MG TWICE PER DAY
     Route: 065
     Dates: start: 19990101
  6. GLIBENCLAMIDE [Concomitant]
     Dates: start: 19980701, end: 20010701
  7. GLIPIZIDE [Concomitant]
     Dosage: 10MG TWICE PER DAY
     Dates: start: 20010701
  8. ATORVASTATIN CALCIUM [Concomitant]
     Dosage: 20MG PER DAY
     Dates: start: 20000701

REACTIONS (1)
  - HIGH DENSITY LIPOPROTEIN DECREASED [None]
